FAERS Safety Report 6527539-7 (Version None)
Quarter: 2010Q1

REPORT INFORMATION
  Report Type: 
  Country: None (occurrence: None)
  Receive Date: 20100104
  Receipt Date: 20100104
  Transmission Date: 20100710
  Serious: Yes (Other)
  Sender: FDA-Public Use
  Company Number: None

PATIENT
  Age: 39 Year
  Sex: Female
  Weight: 77.3 kg

DRUGS (3)
  1. PRISTIQ [Suspect]
     Indication: DEPRESSED MOOD
     Dosage: PRISTIQ, 100 MG DAILY ORAL
     Route: 048
  2. PRISTIQ [Suspect]
     Indication: DEPRESSION
     Dosage: PRISTIQ, 100 MG DAILY ORAL
     Route: 048
  3. BIAXIN [Suspect]
     Indication: INFECTION
     Dosage: BIAXIN DAILY ORAL
     Route: 048

REACTIONS (9)
  - ANGER [None]
  - ANXIETY [None]
  - DEPRESSION [None]
  - DRUG DOSE OMISSION [None]
  - HEADACHE [None]
  - HYPERACUSIS [None]
  - PANIC REACTION [None]
  - PHOTOPHOBIA [None]
  - SEROTONIN SYNDROME [None]
